FAERS Safety Report 20938963 (Version 1)
Quarter: 2022Q2

REPORT INFORMATION
  Report Type: Spontaneous
  Country: None (occurrence: FR)
  Receive Date: 20220609
  Receipt Date: 20220609
  Transmission Date: 20220721
  Serious: Yes (Hospitalization)
  Sender: FDA-Public Use
  Company Number: FR-B.Braun Medical Inc.-2129643

PATIENT
  Age: 36 Year
  Sex: Female

DRUGS (2)
  1. SODIUM CHLORIDE [Suspect]
     Active Substance: SODIUM CHLORIDE
  2. LIDOCAINE [Suspect]
     Active Substance: LIDOCAINE

REACTIONS (3)
  - Seizure [Recovered/Resolved]
  - Wrong product administered [Recovered/Resolved]
  - Product confusion [Recovered/Resolved]
